FAERS Safety Report 13395140 (Version 1)
Quarter: 2017Q1

REPORT INFORMATION
  Report Type: Spontaneous
  Country: US (occurrence: US)
  Receive Date: 20170331
  Receipt Date: 20170331
  Transmission Date: 20170429
  Serious: No
  Sender: FDA-Public Use
  Company Number: None

PATIENT
  Sex: Female

DRUGS (1)
  1. IBRANCE [Suspect]
     Active Substance: PALBOCICLIB
     Indication: BREAST CANCER
     Dosage: 125MG QD X 21 DAYS ON PO
     Route: 048
     Dates: start: 20161111

REACTIONS (4)
  - Blood urine present [None]
  - Alopecia [None]
  - Urine odour abnormal [None]
  - Madarosis [None]
